FAERS Safety Report 8004855-3 (Version None)
Quarter: 2011Q4

REPORT INFORMATION
  Report Type: 
  Country: None (occurrence: None)
  Receive Date: 20111223
  Receipt Date: 20111219
  Transmission Date: 20120403
  Serious: Yes (Other)
  Sender: FDA-Public Use
  Company Number: CHPA2011NO018189

PATIENT
  Age: 15 Year

DRUGS (7)
  1. ONDANSETRON [Concomitant]
     Indication: NAUSEA
     Dosage: UNK, UNK
  2. MEDROL [Concomitant]
     Indication: NAUSEA
     Dosage: UNK, UNK
  3. SCOPOLAMINE [Suspect]
     Dosage: 1 DF, UNK
     Route: 062
     Dates: start: 20111211
  4. SCOPOLAMINE [Suspect]
     Indication: NAUSEA
     Dosage: 1 DF, Q72H
     Route: 062
     Dates: start: 20111207, end: 20111211
  5. ACETAMINOPHEN [Concomitant]
     Dosage: UNK, UNK
  6. IBUPROFEN [Concomitant]
     Dosage: UNK, UNK
  7. ESOMEPRAZOLE MAGNESIUM [Concomitant]
     Dosage: UNK, UNK

REACTIONS (4)
  - OFF LABEL USE [None]
  - INAPPROPRIATE SCHEDULE OF DRUG ADMINISTRATION [None]
  - HEADACHE [None]
  - DIPLOPIA [None]
